FAERS Safety Report 9714129 (Version 1)
Quarter: 2013Q4

REPORT INFORMATION
  Report Type: Spontaneous
  Country: US (occurrence: US)
  Receive Date: 20131126
  Receipt Date: 20131126
  Transmission Date: 20140711
  Serious: No
  Sender: FDA-Public Use
  Company Number: US-GILEAD-2008-0019007

PATIENT
  Sex: Female
  Weight: 58.97 kg

DRUGS (10)
  1. LETAIRIS [Suspect]
     Indication: PULMONARY ARTERIAL HYPERTENSION
     Route: 048
  2. REVATIO [Concomitant]
  3. VENTAVIS [Concomitant]
     Dosage: 5-9 TIMES PER DAY
     Route: 055
  4. LASIX [Concomitant]
     Route: 048
  5. NEXIUM [Concomitant]
     Route: 048
  6. PERCODAN [Concomitant]
     Dosage: Q4 HRS, AS NEEDED
     Route: 048
  7. OXYCONTIN [Concomitant]
     Route: 048
  8. AMBIEN [Concomitant]
     Route: 048
  9. POTASSIUM SA [Concomitant]
     Route: 048
  10. LACTULOSE [Concomitant]
     Route: 048

REACTIONS (1)
  - Joint swelling [None]
